FAERS Safety Report 9747469 (Version 1)
Quarter: 2013Q4

REPORT INFORMATION
  Report Type: Report from Study
  Country: US (occurrence: US)
  Receive Date: 20131212
  Receipt Date: 20131212
  Transmission Date: 20140711
  Serious: Yes (Other)
  Sender: FDA-Public Use
  Company Number: US-ROCHE-1314391

PATIENT
  Sex: Female
  Weight: 43.6 kg

DRUGS (3)
  1. NUTROPIN AQ [Suspect]
     Indication: TURNER^S SYNDROME
     Route: 058
  2. NASONEX [Concomitant]
     Route: 045
  3. CLARITIN [Concomitant]
     Route: 048

REACTIONS (6)
  - Heart rate increased [Unknown]
  - Headache [Unknown]
  - Neck pain [Unknown]
  - Nausea [Unknown]
  - Diarrhoea [Unknown]
  - Dry skin [Unknown]
